FAERS Safety Report 4506364-2 (Version None)
Quarter: 2004Q4

REPORT INFORMATION
  Report Type: 
  Country: None (occurrence: None)
  Receive Date: 20041025
  Receipt Date: 20040210
  Transmission Date: 20050328
  Serious: Yes (Other)
  Sender: FDA-Public Use
  Company Number: US-JNJFOC-20031101411

PATIENT
  Age: 50 Year
  Sex: Female
  Weight: 106.5953 kg

DRUGS (9)
  1. REMICADE [Suspect]
     Indication: RHEUMATOID ARTHRITIS
     Dosage: 3 MG/KG, INTRAVENOUS
     Route: 042
     Dates: start: 20031104
  2. BENADRYL [Concomitant]
  3. SOLU-MEDROL [Concomitant]
  4. BEXTRA [Concomitant]
  5. ZOLOFT [Concomitant]
  6. PREMARIN [Concomitant]
  7. GEMFIBROZIL [Concomitant]
  8. SYNTHROID [Concomitant]
  9. PREVACID [Concomitant]

REACTIONS (16)
  - ARTHRALGIA [None]
  - BACK PAIN [None]
  - CHILLS [None]
  - CHOKING SENSATION [None]
  - DIZZINESS [None]
  - DYSPNOEA [None]
  - FLUSHING [None]
  - HEADACHE [None]
  - HYPERHIDROSIS [None]
  - HYPERTENSION [None]
  - HYPOAESTHESIA [None]
  - HYPOTENSION [None]
  - INFUSION RELATED REACTION [None]
  - MYALGIA [None]
  - TACHYCARDIA [None]
  - VOMITING [None]
